FAERS Safety Report 8832032 (Version 1)
Quarter: 2012Q4

REPORT INFORMATION
  Report Type: Report from Study
  Country: DE (occurrence: DE)
  Receive Date: 20121009
  Receipt Date: 20121009
  Transmission Date: 20130627
  Serious: Yes (Death)
  Sender: FDA-Public Use
  Company Number: DE-ROCHE-CID000000002172828

PATIENT
  Sex: Male
  Weight: 89 kg

DRUGS (4)
  1. AVASTIN [Suspect]
     Indication: RECTAL CANCER METASTATIC
     Route: 042
     Dates: start: 20120918, end: 20120918
  2. SODIUM FOLINATE [Suspect]
     Indication: RECTAL CANCER METASTATIC
     Route: 042
     Dates: start: 20120918, end: 20120918
  3. 5-FLUOROURACIL [Suspect]
     Indication: RECTAL CANCER METASTATIC
     Route: 042
     Dates: start: 20120918, end: 20120918
  4. IRINOTECAN [Suspect]
     Indication: RECTAL CANCER METASTATIC
     Route: 042
     Dates: start: 20120918, end: 20120918

REACTIONS (2)
  - Convulsion [Fatal]
  - Aspiration [Fatal]
